FAERS Safety Report 20989074 (Version 1)
Quarter: 2022Q2

REPORT INFORMATION
  Report Type: Report from Study
  Country: US (occurrence: US)
  Receive Date: 20220621
  Receipt Date: 20220621
  Transmission Date: 20220721
  Serious: Yes (Hospitalization, Congenital Anomaly, Other)
  Sender: FDA-Public Use
  Company Number: US-BRISTOL-MYERS SQUIBB COMPANY-2022-054299

PATIENT
  Age: 64 Year
  Sex: Female
  Weight: 72.57 kg

DRUGS (1)
  1. POMALYST [Suspect]
     Active Substance: POMALIDOMIDE
     Indication: Hereditary haemorrhagic telangiectasia
     Route: 048

REACTIONS (3)
  - Hereditary haemorrhagic telangiectasia [Unknown]
  - Gastrointestinal haemorrhage [Unknown]
  - Intentional product use issue [Unknown]
